FAERS Safety Report 4748721-5 (Version None)
Quarter: 2005Q3

REPORT INFORMATION
  Report Type: 
  Country: None (occurrence: None)
  Receive Date: 20050816
  Receipt Date: 20050728
  Transmission Date: 20060218
  Serious: Yes (Hospitalization, Other)
  Sender: FDA-Public Use
  Company Number: 2005BH001089

PATIENT
  Age: 18 Year
  Sex: Male
  Weight: 115 kg

DRUGS (1)
  1. TISSEEL VH KIT [Suspect]
     Indication: DRUG USE FOR UNKNOWN INDICATION
     Dosage: 2 ML; ONCE; TOP
     Route: 061
     Dates: start: 20050707, end: 20050707

REACTIONS (3)
  - TRANSPLANT REJECTION [None]
  - WOUND INFECTION PSEUDOMONAS [None]
  - WOUND INFECTION STAPHYLOCOCCAL [None]
